FAERS Safety Report 9230309 (Version 1)
Quarter: 2013Q2

REPORT INFORMATION
  Report Type: Spontaneous
  Country: US (occurrence: None)
  Receive Date: 20130411
  Receipt Date: 20130411
  Transmission Date: 20140414
  Serious: Yes (Death)
  Sender: FDA-Public Use
  Company Number: ONY-2013-001

PATIENT
  Age: 20 None
  Sex: 0
  Weight: .6 kg

DRUGS (1)
  1. INFASURF [Suspect]
     Indication: NEONATAL RESPIRATORY DISTRESS SYNDROME

REACTIONS (3)
  - Bradycardia [None]
  - Oxygen saturation decreased [None]
  - Pulmonary haemorrhage [None]
